FAERS Safety Report 19430792 (Version 1)
Quarter: 2021Q2

REPORT INFORMATION
  Report Type: Spontaneous
  Country: US (occurrence: US)
  Receive Date: 20210618
  Receipt Date: 20210618
  Transmission Date: 20210717
  Serious: Yes (Life-Threatening, Hospitalization)
  Sender: FDA-Public Use
  Company Number: US-ASTRAZENECA-2021A527060

PATIENT
  Age: 903 Month
  Sex: Female
  Weight: 48.1 kg

DRUGS (3)
  1. KEPPRA [Concomitant]
     Active Substance: LEVETIRACETAM
  2. KLONOPIN [Concomitant]
     Active Substance: CLONAZEPAM
  3. SYMBICORT [Suspect]
     Active Substance: BUDESONIDE\FORMOTEROL FUMARATE DIHYDRATE
     Indication: CHRONIC OBSTRUCTIVE PULMONARY DISEASE
     Dosage: 160?4.5 MCG UNKNOWN
     Route: 055

REACTIONS (12)
  - Incorrect dose administered by device [Unknown]
  - Encephalitis [Unknown]
  - Hypoaesthesia [Unknown]
  - Somnolence [Unknown]
  - Intentional device misuse [Unknown]
  - Cerebrovascular accident [Unknown]
  - Wrong technique in device usage process [Unknown]
  - Brain abscess [Unknown]
  - Device malfunction [Unknown]
  - Amnesia [Unknown]
  - Meningitis [Unknown]
  - Product packaging quantity issue [Unknown]

NARRATIVE: CASE EVENT DATE: 202012
